FAERS Safety Report 4676590-0 (Version None)
Quarter: 2005Q2

REPORT INFORMATION
  Report Type: 
  Country: None (occurrence: None)
  Receive Date: 20050525
  Receipt Date: 20050513
  Transmission Date: 20051028
  Serious: Yes (Other)
  Sender: FDA-Public Use
  Company Number: 2005063472

PATIENT
  Age: 68 Year
  Sex: Male
  Weight: 62 kg

DRUGS (4)
  1. NEURONTIN [Suspect]
     Indication: SCIATICA
     Dosage: 1200 MG (400 MG, 3 IN 1 D), ORAL
     Route: 048
     Dates: start: 20040201, end: 20040401
  2. ANTIHYPERTENSIVES       (ANTIHYPERTENSIVES) [Concomitant]
  3. STATINS                     (HMG COA REDUCTASE INHIBITORS) [Concomitant]
  4. PANADEINE FORTE                      (CODEINE PHOSPHATE, PARACETAMOL) [Concomitant]

REACTIONS (3)
  - DRUG DOSE OMISSION [None]
  - FALL [None]
  - GRAND MAL CONVULSION [None]
